FAERS Safety Report 5982104-5 (Version None)
Quarter: 2008Q4

REPORT INFORMATION
  Report Type: 
  Country: None (occurrence: None)
  Receive Date: 20081202
  Receipt Date: 20081118
  Transmission Date: 20090506
  Serious: Yes (Other)
  Sender: FDA-Public Use
  Company Number: ENT 2008-0164

PATIENT
  Age: 63 Year
  Sex: Male

DRUGS (5)
  1. COMTAN [Suspect]
     Indication: DRUG EFFECT DECREASED
     Dosage: 500 MG ORAL
     Route: 048
     Dates: start: 20070704, end: 20070705
  2. SYMMETREL [Concomitant]
  3. MUCOSTA [Concomitant]
  4. PRAMIPEXOLE DIHYDROCHLORIDE [Concomitant]
  5. MADOPAR [Concomitant]

REACTIONS (2)
  - HALLUCINATION [None]
  - NAUSEA [None]
